FAERS Safety Report 12252935 (Version 1)
Quarter: 2016Q2

REPORT INFORMATION
  Report Type: Spontaneous
  Country: US (occurrence: US)
  Receive Date: 20160411
  Receipt Date: 20160411
  Transmission Date: 20160815
  Serious: No
  Sender: FDA-Public Use
  Company Number: US-WARNER CHILCOTT, LLC-1050425

PATIENT
  Age: 61 Year
  Sex: Female

DRUGS (4)
  1. FEMRING [Suspect]
     Active Substance: ESTRADIOL ACETATE
     Indication: HORMONE REPLACEMENT THERAPY
     Route: 067
     Dates: end: 20150421
  2. FEMRING [Suspect]
     Active Substance: ESTRADIOL ACETATE
     Route: 067
  3. MELOXICAM. [Concomitant]
     Active Substance: MELOXICAM
  4. NADOLOL. [Concomitant]
     Active Substance: NADOLOL

REACTIONS (1)
  - Drug ineffective [Unknown]

NARRATIVE: CASE EVENT DATE: 2015
